FAERS Safety Report 8184993-5 (Version None)
Quarter: 2012Q1

REPORT INFORMATION
  Report Type: 
  Country: None (occurrence: None)
  Receive Date: 20120210
  Receipt Date: 20111006
  Transmission Date: 20120608
  Serious: Yes (Life-Threatening, Hospitalization)
  Sender: FDA-Public Use
  Company Number: 2011BH030534

PATIENT
  Age: 23 Year
  Sex: Female
  Weight: 52 kg

DRUGS (4)
  1. CARBOPLATIN [Suspect]
     Indication: NEPHROBLASTOMA
     Dosage: 460 MG;UNK;IV
     Route: 042
     Dates: start: 20110919
  2. MESNA [Suspect]
     Indication: CHEMOTHERAPY
     Dosage: 200 MG;UNK;IV
     Route: 042
     Dates: start: 20110919, end: 20110921
  3. CYCLOPHOSPHAMIDE [Suspect]
     Indication: NEPHROBLASTOMA
     Dosage: 930 MG;UNK;IV
     Route: 042
     Dates: start: 20110919
  4. ETOPOSIDE [Suspect]
     Indication: NEPHROBLASTOMA
     Dosage: 210 MG;UNK;IV
     Route: 042
     Dates: start: 20110919

REACTIONS (1)
  - ANAPHYLACTIC REACTION [None]
